FAERS Safety Report 21308210 (Version 1)
Quarter: 2022Q3

REPORT INFORMATION
  Report Type: Spontaneous
  Country: US (occurrence: None)
  Receive Date: 20220908
  Receipt Date: 20220908
  Transmission Date: 20221027
  Serious: No
  Sender: FDA-Public Use
  Company Number: None

PATIENT
  Age: 56 Year

DRUGS (14)
  1. INLYTA [Suspect]
     Active Substance: AXITINIB
     Indication: Metastases to lung
     Dosage: FREQUENCY : TWICE A DAY;?
     Route: 048
  2. KEYTRUDA [Suspect]
     Active Substance: PEMBROLIZUMAB
  3. AMLODIPINE [Concomitant]
     Active Substance: AMLODIPINE BESYLATE
  4. B12 SUBLINGUAL [Concomitant]
  5. DORZOLAMIDE [Concomitant]
     Active Substance: DORZOLAMIDE
  6. FISH OIL [Concomitant]
     Active Substance: FISH OIL
  7. FLONASE ALLERGY RELIEF [Concomitant]
     Active Substance: FLUTICASONE PROPIONATE
  8. LATANOPROST [Concomitant]
     Active Substance: LATANOPROST
  9. LORATADINE [Concomitant]
     Active Substance: LORATADINE
  10. LORATADINE [Concomitant]
     Active Substance: LORATADINE
  11. LOSARTAN [Concomitant]
     Active Substance: LOSARTAN
  12. POTASSIUM [Concomitant]
     Active Substance: POTASSIUM
  13. VITAMIN C [Concomitant]
     Active Substance: ASCORBIC ACID
  14. VITAMIN D3 [Concomitant]
     Active Substance: CHOLECALCIFEROL

REACTIONS (1)
  - Blood potassium decreased [None]
